FAERS Safety Report 6792328-5 (Version None)
Quarter: 2010Q2

REPORT INFORMATION
  Report Type: 
  Country: None (occurrence: None)
  Receive Date: 20100624
  Receipt Date: 20100614
  Transmission Date: 20101027
  Serious: Yes (Other)
  Sender: FDA-Public Use
  Company Number: GB-GENENTECH-303163

PATIENT
  Age: 14 Year
  Sex: Female

DRUGS (3)
  1. RITUXIMAB [Suspect]
     Indication: THROMBOTIC THROMBOCYTOPENIC PURPURA
     Dosage: 375 MG/M2, Q4W
     Route: 065
  2. MYCOPHENOLATE MOFETIL [Suspect]
     Indication: AUTOIMMUNE HEPATITIS
     Dosage: UNK
     Route: 065
  3. PREDNISOLONE [Suspect]
     Indication: AUTOIMMUNE HEPATITIS
     Dosage: UNK
     Route: 065

REACTIONS (1)
  - SERUM SICKNESS [None]
